FAERS Safety Report 4947626-4 (Version None)
Quarter: 2006Q1

REPORT INFORMATION
  Report Type: 
  Country: None (occurrence: None)
  Receive Date: 20060320
  Receipt Date: 20060308
  Transmission Date: 20060701
  Serious: Yes (Other)
  Sender: FDA-Public Use
  Company Number: GB-JNJFOC-20060300413

PATIENT
  Sex: Male

DRUGS (4)
  1. TRAMADOL HYDROCHLORIDE AND ACETAMINOPHEN [Suspect]
     Indication: PAIN
     Dosage: 1 DOSE = 1 TABLET
     Route: 048
  2. RAMIPRIL [Concomitant]
     Indication: HYPERTENSION
     Route: 048
  3. SIMVASTATIN [Concomitant]
     Route: 048
  4. CLOPIDOGREL [Concomitant]
     Route: 048

REACTIONS (2)
  - ACUTE PSYCHOSIS [None]
  - FALL [None]
